FAERS Safety Report 5064580-8 (Version None)
Quarter: 2006Q3

REPORT INFORMATION
  Report Type: 
  Country: None (occurrence: None)
  Receive Date: 20060706
  Receipt Date: 20060525
  Transmission Date: 20061208
  Serious: No
  Sender: FDA-Public Use
  Company Number: 200613532BWH

PATIENT

DRUGS (1)
  1. LEVITRA [Suspect]
     Indication: ERECTILE DYSFUNCTION
     Dosage: 10 MG , TOTAL DAILY, ORAL
     Route: 048

REACTIONS (4)
  - DIZZINESS [None]
  - FEELING HOT [None]
  - FLUSHING [None]
  - OCULAR HYPERAEMIA [None]
